FAERS Safety Report 7679404-X (Version None)
Quarter: 2011Q3

REPORT INFORMATION
  Report Type: 
  Country: None (occurrence: None)
  Receive Date: 20110805
  Receipt Date: 20110727
  Transmission Date: 20111222
  Serious: Yes (Hospitalization, Other)
  Sender: FDA-Public Use
  Company Number: 2011SP035264

PATIENT
  Sex: Female

DRUGS (1)
  1. IMPLANON [Suspect]
     Indication: CONTRACEPTION
     Dates: start: 20110101

REACTIONS (13)
  - INJECTION SITE ANAESTHESIA [None]
  - LOSS OF CONSCIOUSNESS [None]
  - PAIN IN EXTREMITY [None]
  - SYNCOPE [None]
  - OEDEMA PERIPHERAL [None]
  - ABDOMINAL PAIN [None]
  - MAJOR DEPRESSION [None]
  - INJECTION SITE PAIN [None]
  - SUICIDAL IDEATION [None]
  - MOOD SWINGS [None]
  - HAEMORRHAGE [None]
  - CRYING [None]
  - INJECTION SITE SWELLING [None]
